FAERS Safety Report 14611090 (Version 2)
Quarter: 2018Q1

REPORT INFORMATION
  Report Type: Report from Study
  Country: DE (occurrence: DE)
  Receive Date: 20180308
  Receipt Date: 20180322
  Transmission Date: 20180509
  Serious: Yes (Death, Hospitalization, Other)
  Sender: FDA-Public Use
  Company Number: DE-MERCK KGAA-2043215

PATIENT
  Age: 80 Year
  Sex: Female
  Weight: 56 kg

DRUGS (15)
  1. PACLITAXEL. [Suspect]
     Active Substance: PACLITAXEL
     Route: 042
     Dates: start: 20170505, end: 20170810
  2. XGEVA [Suspect]
     Active Substance: DENOSUMAB
     Route: 058
     Dates: start: 20170421
  3. HERCEPTIN [Suspect]
     Active Substance: TRASTUZUMAB
     Route: 042
     Dates: start: 20170505, end: 20170817
  4. BISOHEXAL [Concomitant]
     Active Substance: BISOPROLOL FUMARATE
     Route: 048
  5. NOVOTHYROX [Suspect]
     Active Substance: LEVOTHYROXINE SODIUM
     Indication: HYPOTHYROIDISM
     Route: 048
     Dates: start: 20060630
  6. PERTUZUMAB. [Suspect]
     Active Substance: PERTUZUMAB
     Route: 042
     Dates: start: 20170505, end: 20170817
  7. HERCEPTIN [Suspect]
     Active Substance: TRASTUZUMAB
     Route: 042
     Dates: start: 20170817
  8. DOXEPIN [Concomitant]
     Active Substance: DOXEPIN
     Route: 048
     Dates: start: 20170630
  9. XARELTO [Concomitant]
     Active Substance: RIVAROXABAN
     Dates: start: 20150630
  10. LETROZOLE. [Suspect]
     Active Substance: LETROZOLE
     Route: 048
     Dates: start: 20170916
  11. HERCEPTIN [Suspect]
     Active Substance: TRASTUZUMAB
     Route: 042
     Dates: start: 20180103
  12. DOCETAXEL. [Suspect]
     Active Substance: DOCETAXEL
  13. TORASEMIDE [Suspect]
     Active Substance: TORSEMIDE
  14. BISOHEXAL [Concomitant]
     Active Substance: BISOPROLOL FUMARATE
     Route: 048
     Dates: start: 19980630
  15. MIRTAZAPINE. [Suspect]
     Active Substance: MIRTAZAPINE
     Route: 048
     Dates: start: 20050630

REACTIONS (11)
  - Asthenia [Fatal]
  - Nausea [Fatal]
  - Cystitis [Recovered/Resolved]
  - Left ventricular dysfunction [Fatal]
  - Ill-defined disorder [Fatal]
  - Metastases to bone [Fatal]
  - Fatigue [Fatal]
  - Dysaesthesia [Fatal]
  - Mastectomy [Fatal]
  - Cystitis [Fatal]
  - Metastases to liver [Fatal]

NARRATIVE: CASE EVENT DATE: 20170421
